FAERS Safety Report 9159205 (Version 1)
Quarter: 2013Q1

REPORT INFORMATION
  Report Type: Spontaneous
  Country: US (occurrence: None)
  Receive Date: 20130213
  Receipt Date: 20130213
  Transmission Date: 20140127
  Serious: Yes (Life-Threatening)
  Sender: FDA-Public Use
  Company Number: 2013SGN00055

PATIENT
  Sex: Male

DRUGS (4)
  1. ADCETRIS (BRENTUXIMAB VEDOTIN) INJECTION [Suspect]
     Indication: HODGKIN^S DISEASE
  2. PHENYTOIN (PHENYTOIN) [Concomitant]
  3. BARBITURATES AND DERIVATIVES [Concomitant]
  4. BETA-LACTAM ANITBACTERIALS, PENICILLINS [Concomitant]

REACTIONS (1)
  - Toxic epidermal necrolysis [None]
